FAERS Safety Report 10467580 (Version 4)
Quarter: 2015Q1

REPORT INFORMATION
  Report Type: Spontaneous
  Country: US (occurrence: US)
  Receive Date: 20140922
  Receipt Date: 20150317
  Transmission Date: 20150720
  Serious: Yes (Life-Threatening, Hospitalization, Other)
  Sender: FDA-Public Use
  Company Number: US-BAYER-2014-140840

PATIENT
  Age: 31 Year
  Sex: Female
  Weight: 72.56 kg

DRUGS (4)
  1. MIRENA [Suspect]
     Active Substance: LEVONORGESTREL
     Indication: CONTRACEPTION
     Dosage: 20 MCG/24HR, CONT
     Route: 015
     Dates: start: 20110404, end: 20131121
  2. ZOLOFT [Concomitant]
     Active Substance: SERTRALINE HYDROCHLORIDE
  3. VICODIN [Concomitant]
     Active Substance: ACETAMINOPHEN\HYDROCODONE BITARTRATE
     Indication: PAIN
  4. XANAX [Concomitant]
     Active Substance: ALPRAZOLAM

REACTIONS (21)
  - Uterine perforation [None]
  - Injury [None]
  - Internal haemorrhage [None]
  - Ruptured ectopic pregnancy [None]
  - Genital haemorrhage [None]
  - Medical device discomfort [None]
  - Fear [Not Recovered/Not Resolved]
  - Apparent death [None]
  - Drug ineffective [None]
  - Internal injury [None]
  - Depression [Not Recovered/Not Resolved]
  - General physical health deterioration [None]
  - Pelvic pain [None]
  - Hypotension [None]
  - Ectopic pregnancy with contraceptive device [None]
  - Anxiety [Not Recovered/Not Resolved]
  - Device issue [None]
  - Emotional distress [Not Recovered/Not Resolved]
  - Nausea [None]
  - Depressed mood [Not Recovered/Not Resolved]
  - Abdominal pain [None]

NARRATIVE: CASE EVENT DATE: 201104
